FAERS Safety Report 4591183-1 (Version None)
Quarter: 2005Q1

REPORT INFORMATION
  Report Type: 
  Country: None (occurrence: None)
  Receive Date: 20050225
  Receipt Date: 20050214
  Transmission Date: 20050727
  Serious: Yes (Death)
  Sender: FDA-Public Use
  Company Number: JP-MERCK-0502USA02344

PATIENT
  Age: 57 Year
  Sex: Male

DRUGS (3)
  1. DECADRON [Suspect]
     Indication: MULTIPLE MYELOMA
     Route: 048
     Dates: end: 20050114
  2. ONCOVIN [Suspect]
     Indication: MULTIPLE MYELOMA
     Route: 042
     Dates: start: 20050111, end: 20050114
  3. ADRIACIN [Suspect]
     Indication: MULTIPLE MYELOMA
     Route: 042
     Dates: start: 20050111, end: 20050114

REACTIONS (5)
  - CARDIAC FAILURE ACUTE [None]
  - INTERSTITIAL LUNG DISEASE [None]
  - OPPORTUNISTIC INFECTION [None]
  - RESPIRATORY FAILURE [None]
  - SECONDARY IMMUNODEFICIENCY [None]
